FAERS Safety Report 11995377 (Version 7)
Quarter: 2016Q1

REPORT INFORMATION
  Report Type: Spontaneous
  Country: JP (occurrence: JP)
  Receive Date: 20160203
  Receipt Date: 20160317
  Transmission Date: 20160526
  Serious: Yes (Death, Hospitalization, Other)
  Sender: FDA-Public Use
  Company Number: JP-MEDTRONIC-1047259

PATIENT
  Age: 75 Year
  Sex: Male

DRUGS (1)
  1. GABALON [Suspect]
     Active Substance: BACLOFEN
     Indication: CEREBRAL INFARCTION
     Route: 037
     Dates: end: 20160201

REACTIONS (6)
  - Pneumonia staphylococcal [Fatal]
  - Hypersensitivity [Unknown]
  - Interstitial lung disease [Unknown]
  - Lymphocyte stimulation test positive [Unknown]
  - Meningitis staphylococcal [Fatal]
  - Pneumonitis [Not Recovered/Not Resolved]
